FAERS Safety Report 7541663-1 (Version None)
Quarter: 2011Q2

REPORT INFORMATION
  Report Type: 
  Country: None (occurrence: None)
  Receive Date: 20110603
  Receipt Date: 20110520
  Transmission Date: 20111010
  Serious: Yes (Death, Hospitalization)
  Sender: FDA-Public Use
  Company Number: NAP-11-03

PATIENT
  Age: 46 Year
  Sex: Male

DRUGS (6)
  1. MORPHINE [Concomitant]
  2. DEXAMETHASONE [Concomitant]
  3. NAPROXEN [Suspect]
     Indication: METASTATIC MALIGNANT MELANOMA
     Dosage: 500MG/2X DAY
  4. PEG-3350 [Concomitant]
  5. CARBOPLATIN [Concomitant]
  6. WARFARIN SODIUM [Concomitant]

REACTIONS (16)
  - HYPERKALAEMIA [None]
  - INTERNATIONAL NORMALISED RATIO INCREASED [None]
  - TUMOUR HAEMORRHAGE [None]
  - ABDOMINAL PAIN [None]
  - TACHYCARDIA [None]
  - HAEMOGLOBIN DECREASED [None]
  - CONSTIPATION [None]
  - LETHARGY [None]
  - BACK PAIN [None]
  - HYPOTENSION [None]
  - HYPONATRAEMIA [None]
  - HYPERHIDROSIS [None]
  - AGGRESSION [None]
  - CONFUSIONAL STATE [None]
  - ASTHENIA [None]
  - AGITATION [None]
